FAERS Safety Report 8473077-4 (Version None)
Quarter: 2012Q2

REPORT INFORMATION
  Report Type: 
  Country: None (occurrence: None)
  Receive Date: 20120627
  Receipt Date: 20120618
  Transmission Date: 20120825
  Serious: Yes (Other)
  Sender: FDA-Public Use
  Company Number: CA-ROCHE-1078055

PATIENT
  Sex: Male

DRUGS (11)
  1. VEMURAFENIB [Suspect]
     Indication: METASTATIC MALIGNANT MELANOMA
     Route: 048
     Dates: start: 20120501, end: 20120614
  2. METOPROLOL TARTRATE [Concomitant]
     Indication: HYPERTENSION
     Route: 048
  3. VEMURAFENIB [Suspect]
     Dates: start: 20120608, end: 20120614
  4. RAMIPRIL [Concomitant]
     Indication: HYPERTENSION
     Route: 048
  5. LACTULOSE [Concomitant]
     Indication: CONSTIPATION
     Dosage: 667 MG/ML TO 50 ML
  6. APO-PROCHLORAZINE [Concomitant]
     Indication: NAUSEA
     Dosage: AS PER REQUIRED
     Route: 048
  7. CITALOPRAM HYDROBROMIDE [Concomitant]
  8. DOCUSATE SODIUM [Concomitant]
     Indication: CONSTIPATION
     Route: 048
  9. TYLENOL W/ CODEINE NO. 3 [Concomitant]
     Indication: PAIN
  10. MULTI-VITAMINS [Concomitant]
  11. GALANTAMINE HYDROBROMIDE [Concomitant]
     Indication: DEMENTIA ALZHEIMER'S TYPE

REACTIONS (5)
  - HEADACHE [None]
  - LOWER EXTREMITY MASS [None]
  - PYREXIA [None]
  - MOBILITY DECREASED [None]
  - TREMOR [None]
